FAERS Safety Report 22226065 (Version 3)
Quarter: 2023Q2

REPORT INFORMATION
  Report Type: Spontaneous
  Country: US (occurrence: US)
  Receive Date: 20230419
  Receipt Date: 20230427
  Transmission Date: 20230722
  Serious: No
  Sender: FDA-Public Use
  Company Number: US-BIOGEN-2022BI01091731

PATIENT
  Sex: Female

DRUGS (6)
  1. VUMERITY [Suspect]
     Active Substance: DIROXIMEL FUMARATE
     Indication: Multiple sclerosis
     Dosage: STARTING DOSE
     Route: 050
     Dates: start: 20210427
  2. VUMERITY [Suspect]
     Active Substance: DIROXIMEL FUMARATE
     Dosage: MAINTENANCE DOSE
     Route: 050
  3. VUMERITY [Suspect]
     Active Substance: DIROXIMEL FUMARATE
     Route: 050
  4. LAMICTAL [Concomitant]
     Active Substance: LAMOTRIGINE
     Route: 050
  5. INCRUSE ELLIPTA [Concomitant]
     Active Substance: UMECLIDINIUM BROMIDE
     Route: 050
  6. VITAMIN B12 [Concomitant]
     Active Substance: CYANOCOBALAMIN
     Route: 050

REACTIONS (35)
  - Intentional product misuse [Not Recovered/Not Resolved]
  - Amnesia [Not Recovered/Not Resolved]
  - Dizziness [Not Recovered/Not Resolved]
  - Irritability [Not Recovered/Not Resolved]
  - Distractibility [Not Recovered/Not Resolved]
  - Asthenia [Unknown]
  - Anxiety disorder [Not Recovered/Not Resolved]
  - Fatigue [Not Recovered/Not Resolved]
  - Stress [Not Recovered/Not Resolved]
  - Vision blurred [Not Recovered/Not Resolved]
  - Dysarthria [Not Recovered/Not Resolved]
  - Muscular weakness [Not Recovered/Not Resolved]
  - Sluggishness [Unknown]
  - Lung disorder [Unknown]
  - Eye disorder [Unknown]
  - Gait disturbance [Unknown]
  - Memory impairment [Unknown]
  - Limb discomfort [Unknown]
  - Motor dysfunction [Unknown]
  - Speech disorder [Unknown]
  - Thirst [Unknown]
  - Food craving [Unknown]
  - Dyspnoea [Unknown]
  - Malaise [Unknown]
  - Depressed level of consciousness [Unknown]
  - Balance disorder [Unknown]
  - Hypoaesthesia [Unknown]
  - Cough [Unknown]
  - Depression [Unknown]
  - Gait inability [Unknown]
  - Decreased appetite [Unknown]
  - Pain [Unknown]
  - Mobility decreased [Unknown]
  - Discomfort [Unknown]
  - Panic attack [Unknown]

NARRATIVE: CASE EVENT DATE: 20210101
